FAERS Safety Report 20934548 (Version 1)
Quarter: 2022Q2

REPORT INFORMATION
  Report Type: Spontaneous
  Country: US (occurrence: US)
  Receive Date: 20220608
  Receipt Date: 20220608
  Transmission Date: 20220720
  Serious: Yes (Other)
  Sender: FDA-Public Use
  Company Number: US-SA-SAC20220607000279

PATIENT
  Age: 22 Year
  Sex: Female

DRUGS (1)
  1. ZANTAC [Suspect]
     Active Substance: RANITIDINE HYDROCHLORIDE
     Indication: Dyspepsia
     Dosage: UNK,  FREQUENCY - OTHER
     Dates: start: 199001, end: 201001

REACTIONS (2)
  - Breast cancer stage III [Not Recovered/Not Resolved]
  - Disease progression [Not Recovered/Not Resolved]

NARRATIVE: CASE EVENT DATE: 19910101
